FAERS Safety Report 10791190 (Version 1)
Quarter: 2015Q1

REPORT INFORMATION
  Report Type: Spontaneous
  Country: PE (occurrence: PE)
  Receive Date: 20150213
  Receipt Date: 20150213
  Transmission Date: 20150721
  Serious: Yes (Disabling)
  Sender: FDA-Public Use
  Company Number: PE-009507513-1502PER003240

PATIENT
  Age: 51 Year
  Sex: Female

DRUGS (1)
  1. NASONEX [Suspect]
     Active Substance: MOMETASONE FUROATE
     Indication: HYPERSENSITIVITY
     Dosage: 2 DF, QD
     Route: 045
     Dates: start: 20140905, end: 20150120

REACTIONS (1)
  - Fibula fracture [Recovering/Resolving]

NARRATIVE: CASE EVENT DATE: 20141217
